FAERS Safety Report 23047181 (Version 2)
Quarter: 2023Q4

REPORT INFORMATION
  Report Type: Spontaneous
  Country: ID (occurrence: ID)
  Receive Date: 20231009
  Receipt Date: 20231016
  Transmission Date: 20240110
  Serious: Yes (Death, Hospitalization)
  Sender: FDA-Public Use
  Company Number: ID-BoehringerIngelheim-2023-BI-264843

PATIENT
  Age: 50 Year
  Sex: Male

DRUGS (1)
  1. GILOTRIF [Suspect]
     Active Substance: AFATINIB
     Indication: Lung adenocarcinoma
     Dates: start: 20230923

REACTIONS (3)
  - Pneumonia [Fatal]
  - Skin discolouration [Not Recovered/Not Resolved]
  - Tuberculosis [Unknown]

NARRATIVE: CASE EVENT DATE: 20231001
